FAERS Safety Report 24010496 (Version 1)
Quarter: 2024Q2

REPORT INFORMATION
  Report Type: Spontaneous
  Country: US (occurrence: None)
  Receive Date: 20240625
  Receipt Date: 20240625
  Transmission Date: 20240715
  Serious: Yes (Hospitalization)
  Sender: FDA-Public Use
  Company Number: None

PATIENT
  Age: 77 Year
  Sex: Male
  Weight: 77.9 kg

DRUGS (5)
  1. CYCLOPHOSPHAMIDE [Suspect]
     Active Substance: CYCLOPHOSPHAMIDE
     Dates: end: 20240529
  2. DOXORUBICIN HYDROCHLORIDE [Suspect]
     Active Substance: DOXORUBICIN HYDROCHLORIDE
     Dates: end: 20240529
  3. FILGRASTIM [Suspect]
     Active Substance: FILGRASTIM
     Dates: end: 20240530
  4. RITUXIMAB [Suspect]
     Active Substance: RITUXIMAB
     Dates: end: 20240529
  5. VINCRISTINE SULFATE [Suspect]
     Active Substance: VINCRISTINE SULFATE
     Dates: end: 20240529

REACTIONS (8)
  - Pleural effusion [None]
  - Hypoalbuminaemia [None]
  - Oedema [None]
  - Malnutrition [None]
  - Muscle atrophy [None]
  - Hypoproteinaemia [None]
  - Mucosal inflammation [None]
  - Dysphonia [None]

NARRATIVE: CASE EVENT DATE: 20240622
